FAERS Safety Report 4472145-1 (Version None)
Quarter: 2004Q3

REPORT INFORMATION
  Report Type: 
  Country: None (occurrence: None)
  Receive Date: 20040909
  Receipt Date: 20040716
  Transmission Date: 20050211
  Serious: No
  Sender: FDA-Public Use
  Company Number: A03200402400

PATIENT
  Sex: Male

DRUGS (3)
  1. ELOXATIN [Suspect]
     Dates: start: 20040101, end: 20040101
  2. FLUOROURACIL [Concomitant]
  3. LEUCOVORIN [Concomitant]

REACTIONS (3)
  - BALANCE DISORDER [None]
  - FATIGUE [None]
  - PARAESTHESIA [None]
